FAERS Safety Report 15374770 (Version 2)
Quarter: 2018Q3

REPORT INFORMATION
  Report Type: Spontaneous
  Country: ES (occurrence: ES)
  Receive Date: 20180912
  Receipt Date: 20180912
  Transmission Date: 20181010
  Serious: Yes (Hospitalization)
  Sender: FDA-Public Use
  Company Number: PHHY2018ES095671

PATIENT
  Age: 87 Year
  Sex: Female

DRUGS (3)
  1. SIMVASTATINA ALTER [Concomitant]
     Indication: HYPERCHOLESTEROLAEMIA
     Dosage: 20 MG, Q24H
     Route: 048
  2. VALSARTAN AND HYDROCHLOROTHIAZIDE [Suspect]
     Active Substance: HYDROCHLOROTHIAZIDE\VALSARTAN
     Indication: HYPERTENSION
     Dosage: 160/12, 5 MG, Q24H
     Route: 048
     Dates: start: 20161205, end: 20170820
  3. PARACETAMOL [Concomitant]
     Active Substance: ACETAMINOPHEN
     Indication: PAIN
     Dosage: 1000 MG, Q12H
     Route: 048

REACTIONS (3)
  - Confusional state [Recovered/Resolved]
  - Hyponatraemia [Recovered/Resolved]
  - Disorientation [Recovered/Resolved]

NARRATIVE: CASE EVENT DATE: 20170813
